FAERS Safety Report 14139495 (Version 2)
Quarter: 2018Q1

REPORT INFORMATION
  Report Type: Spontaneous
  Country: US (occurrence: US)
  Receive Date: 20171028
  Receipt Date: 20180130
  Transmission Date: 20180508
  Serious: Yes (Other)
  Sender: FDA-Public Use
  Company Number: US-BAYER-2017-208261

PATIENT
  Age: 16 Year
  Sex: Female
  Weight: 76.65 kg

DRUGS (6)
  1. IRON [Concomitant]
     Active Substance: IRON
     Dosage: 800 MG, UNK
     Route: 048
     Dates: start: 20170509
  2. MIRENA [Suspect]
     Active Substance: LEVONORGESTREL
     Indication: CONTRACEPTION
     Dosage: 20 MCG/24HR, CONT
     Route: 015
     Dates: start: 20170918, end: 20171023
  3. MIRENA [Suspect]
     Active Substance: LEVONORGESTREL
     Indication: CONTRACEPTION
  4. PROAIR HFA [Concomitant]
     Active Substance: ALBUTEROL SULFATE
     Dosage: 0.18 MG, 6ID
     Route: 055
     Dates: start: 20161018
  5. MIRENA [Suspect]
     Active Substance: LEVONORGESTREL
     Indication: CONTRACEPTION
     Dosage: 20 MCG/24HR, CONT
     Route: 015
     Dates: start: 20171023
  6. FERROUS SULFATE. [Concomitant]
     Active Substance: FERROUS SULFATE
     Dosage: 325 MG, QD
     Route: 048
     Dates: start: 20170526

REACTIONS (4)
  - Device expulsion [None]
  - Abdominal pain lower [None]
  - Genital haemorrhage [Not Recovered/Not Resolved]
  - Eating disorder [None]

NARRATIVE: CASE EVENT DATE: 2017
